FAERS Safety Report 18669453 (Version 1)
Quarter: 2020Q4

REPORT INFORMATION
  Report Type: Spontaneous
  Country: US (occurrence: US)
  Receive Date: 20201224
  Receipt Date: 20201224
  Transmission Date: 20210114
  Serious: No
  Sender: FDA-Public Use
  Company Number: None

PATIENT
  Age: 55 Year
  Sex: Female

DRUGS (1)
  1. GLEEVEC [Suspect]
     Active Substance: IMATINIB MESYLATE
     Indication: CONNECTIVE TISSUE NEOPLASM
     Route: 048
     Dates: start: 201911

REACTIONS (3)
  - Therapy interrupted [None]
  - Insurance issue [None]
  - Thrombosis [None]

NARRATIVE: CASE EVENT DATE: 20201203
